FAERS Safety Report 6935986-4 (Version None)
Quarter: 2010Q3

REPORT INFORMATION
  Report Type: 
  Country: None (occurrence: None)
  Receive Date: 20100819
  Receipt Date: 20100819
  Transmission Date: 20110219
  Serious: No
  Sender: FDA-Public Use
  Company Number: None

PATIENT
  Age: 57 Year
  Sex: Male
  Weight: 83 kg

DRUGS (1)
  1. TRAMADOL HCL [Suspect]
     Indication: PAIN
     Dosage: 100 MG HS PO
     Route: 048
     Dates: start: 20090602, end: 20100614

REACTIONS (5)
  - ANGIOEDEMA [None]
  - ERYTHEMA MULTIFORME [None]
  - PRURITUS [None]
  - RASH [None]
  - URTICARIA [None]
